FAERS Safety Report 5012896-3 (Version None)
Quarter: 2006Q2

REPORT INFORMATION
  Report Type: 
  Country: None (occurrence: None)
  Receive Date: 20060530
  Receipt Date: 20060517
  Transmission Date: 20061013
  Serious: Yes (Hospitalization)
  Sender: FDA-Public Use
  Company Number: JP-BRISTOL-MYERS SQUIBB COMPANY-13384276

PATIENT
  Sex: Female

DRUGS (2)
  1. ENDOXAN [Suspect]
     Indication: BREAST CANCER
  2. FARMORUBICIN [Suspect]
     Indication: BREAST CANCER

REACTIONS (1)
  - HEADACHE [None]
